FAERS Safety Report 25363525 (Version 1)
Quarter: 2025Q2

REPORT INFORMATION
  Report Type: Spontaneous
  Country: US (occurrence: None)
  Receive Date: 20250527
  Receipt Date: 20250527
  Transmission Date: 20250717
  Serious: Yes (Hospitalization)
  Sender: FDA-CTU
  Company Number: None

PATIENT
  Sex: Male

DRUGS (7)
  1. HUMIRA [Suspect]
     Active Substance: ADALIMUMAB
     Indication: Crohn^s disease
     Dosage: FREQUENCY : WEEKLY;?
     Route: 058
     Dates: start: 20220528
  2. ALIGN [Concomitant]
     Active Substance: BIFIDOBACTERIUM LONGUM SUBSP. INFANTIS
  3. CALCIUM [Concomitant]
     Active Substance: CALCIUM
  4. HUMIRA PEN INJ CD/UC/HS [Concomitant]
  5. MULTI VITAMI TAB D-3 [Concomitant]
  6. OMEPRAZOLE SODIUM [Concomitant]
     Active Substance: OMEPRAZOLE SODIUM
  7. VITAMIN C TAB [Concomitant]

REACTIONS (1)
  - Back injury [None]
